FAERS Safety Report 5069111-4 (Version None)
Quarter: 2006Q3

REPORT INFORMATION
  Report Type: 
  Country: None (occurrence: None)
  Receive Date: 20060731
  Receipt Date: 20060510
  Transmission Date: 20061208
  Serious: Yes (Death)
  Sender: FDA-Public Use
  Company Number: 200613177GDS

PATIENT
  Age: 56 Year
  Sex: Female
  Weight: 70 kg

DRUGS (3)
  1. APROTININ [Suspect]
     Indication: ARTERIAL BYPASS OPERATION
     Dosage: 10000 ML, ONCE, INTRAVENOUS NI - SEE IMAGE
     Route: 042
  2. APROTININ [Suspect]
     Indication: VENTRICULAR ASSIST DEVICE INSERTION
     Dosage: 10000 ML, ONCE, INTRAVENOUS NI - SEE IMAGE
     Route: 042
  3. HEPARIN [Concomitant]

REACTIONS (3)
  - POST PROCEDURAL COMPLICATION [None]
  - PULMONARY ARTERIAL PRESSURE INCREASED [None]
  - PULMONARY EMBOLISM [None]
